FAERS Safety Report 6456849-7 (Version None)
Quarter: 2009Q4

REPORT INFORMATION
  Report Type: 
  Country: None (occurrence: None)
  Receive Date: 20091124
  Receipt Date: 20091124
  Transmission Date: 20100525
  Serious: Yes (Other)
  Sender: FDA-Public Use
  Company Number: None

PATIENT
  Age: 40 Year
  Sex: Male
  Weight: 81.6475 kg

DRUGS (1)
  1. CHANTIX [Suspect]
     Indication: SMOKING CESSATION THERAPY
     Dosage: 2 MG 1 MG AM 1 MG PM PO
     Route: 048
     Dates: start: 20091103, end: 20091120

REACTIONS (5)
  - AGGRESSION [None]
  - ANGER [None]
  - DEPRESSION [None]
  - PSYCHOTIC DISORDER [None]
  - SUICIDAL IDEATION [None]
